FAERS Safety Report 13885620 (Version 3)
Quarter: 2018Q1

REPORT INFORMATION
  Report Type: Spontaneous
  Country: US (occurrence: US)
  Receive Date: 20170821
  Receipt Date: 20180110
  Transmission Date: 20180508
  Serious: No
  Sender: FDA-Public Use
  Company Number: US-PFIZER INC-2017358546

PATIENT
  Age: 52 Year
  Sex: Male
  Weight: 83.91 kg

DRUGS (3)
  1. LYRICA [Suspect]
     Active Substance: PREGABALIN
     Indication: NERVE INJURY
     Dosage: 75 MG, 2X/DAY
     Dates: start: 201608
  2. TRAMADOL. [Concomitant]
     Active Substance: TRAMADOL
     Indication: BURNING SENSATION
     Dosage: 25 MG, THREE TIMES A DAY
  3. FAMOTIDINE. [Concomitant]
     Active Substance: FAMOTIDINE
     Indication: DYSPEPSIA
     Dosage: 20 MG, ONCE A DAY

REACTIONS (5)
  - Poor quality sleep [Unknown]
  - Neuralgia [Not Recovered/Not Resolved]
  - Irritability [Unknown]
  - Burning sensation [Not Recovered/Not Resolved]
  - Pain [Unknown]

NARRATIVE: CASE EVENT DATE: 201608
